FAERS Safety Report 24161836 (Version 1)
Quarter: 2024Q3

REPORT INFORMATION
  Report Type: Spontaneous
  Country: IT (occurrence: IT)
  Receive Date: 20240801
  Receipt Date: 20240801
  Transmission Date: 20241017
  Serious: Yes (Other)
  Sender: MYLAN
  Company Number: IT-MYLANLABS-2024M1070659

PATIENT
  Age: 79 Year
  Sex: Male

DRUGS (6)
  1. BACLOFEN [Suspect]
     Active Substance: BACLOFEN
     Indication: Periodic limb movement disorder
     Dosage: 12.5 MILLIGRAM, ADMINISTERED THREE TIMES DAILY; FORMULATION: PILL
     Route: 065
     Dates: start: 2019
  2. PREGABALIN [Suspect]
     Active Substance: PREGABALIN
     Indication: Periodic limb movement disorder
     Dosage: 50 MILLIGRAM, QD
     Route: 065
     Dates: start: 2019, end: 2019
  3. PREGABALIN [Suspect]
     Active Substance: PREGABALIN
     Dosage: 25 MILLIGRAM, HS, AT NIGHT
     Route: 065
     Dates: start: 2019
  4. DELORAZEPAM [Suspect]
     Active Substance: DELORAZEPAM
     Indication: Periodic limb movement disorder
     Dosage: 0.5 MILLIGRAM
     Route: 065
     Dates: start: 2019, end: 2019
  5. DELORAZEPAM [Suspect]
     Active Substance: DELORAZEPAM
     Dosage: 1.5 MILLIGRAM
     Route: 065
     Dates: start: 2019, end: 2019
  6. PAROXETINE [Concomitant]
     Active Substance: PAROXETINE
     Indication: Depression
     Dosage: 20 MILLIGRAM
     Route: 065
     Dates: end: 2019

REACTIONS (2)
  - Drug ineffective for unapproved indication [Unknown]
  - Off label use [Unknown]

NARRATIVE: CASE EVENT DATE: 20190101
